FAERS Safety Report 8050134 (Version 4)
Quarter: 2013Q3

REPORT INFORMATION
  Report Type: Spontaneous
  Country: US (occurrence: US)
  Receive Date: 20110722
  Receipt Date: 20130703
  Transmission Date: 20140515
  Serious: Yes (Hospitalization)
  Sender: FDA-Public Use
  Company Number: US-GLAXOSMITHKLINE-A0937527A

PATIENT
  Age: 65 Year
  Sex: Male

DRUGS (1)
  1. VOTRIENT [Suspect]
     Indication: RENAL CANCER
     Dosage: 400MG TWICE PER DAY
     Route: 048
     Dates: start: 201010

REACTIONS (14)
  - Sepsis [Unknown]
  - Inappropriate schedule of drug administration [Unknown]
  - Hair colour changes [Unknown]
  - Pigmentation disorder [Unknown]
  - Dysgeusia [Unknown]
  - Asthenia [Not Recovered/Not Resolved]
  - Blood urine present [Unknown]
  - Epistaxis [Unknown]
  - Blood pressure increased [Unknown]
  - Vision blurred [Unknown]
  - Hospitalisation [Unknown]
  - Full blood count decreased [Unknown]
  - Infection [Unknown]
  - Fatigue [Not Recovered/Not Resolved]
